FAERS Safety Report 19942271 (Version 1)
Quarter: 2021Q4

REPORT INFORMATION
  Report Type: Spontaneous
  Country: US (occurrence: US)
  Receive Date: 20211012
  Receipt Date: 20211012
  Transmission Date: 20220303
  Serious: No
  Sender: FDA-Public Use
  Company Number: US-GLAXOSMITHKLINE-USCH2021069973

PATIENT
  Sex: Female

DRUGS (4)
  1. ADVIL [Suspect]
     Active Substance: IBUPROFEN
     Indication: Pyrexia
     Dosage: UNK
  2. ADVIL [Suspect]
     Active Substance: IBUPROFEN
     Indication: Pain
  3. ADVIL [Suspect]
     Active Substance: IBUPROFEN
     Indication: Headache
  4. ADVIL [Suspect]
     Active Substance: IBUPROFEN
     Indication: Inflammation

REACTIONS (1)
  - Product use in unapproved indication [Unknown]
